FAERS Safety Report 13054539 (Version 1)
Quarter: 2016Q4

REPORT INFORMATION
  Report Type: Report from Study
  Country: PK (occurrence: PK)
  Receive Date: 20161222
  Receipt Date: 20161222
  Transmission Date: 20170207
  Serious: Yes (Death)
  Sender: FDA-Public Use
  Company Number: PK-INCYTE CORPORATION-2016IN008172

PATIENT
  Sex: Female
  Weight: 40 kg

DRUGS (1)
  1. JAKAVI [Suspect]
     Active Substance: RUXOLITINIB
     Indication: PRIMARY MYELOFIBROSIS
     Dosage: 25 MG (20 MG PLUS 5 MG), BID
     Route: 048
     Dates: start: 20161020, end: 20161127

REACTIONS (1)
  - Primary myelofibrosis [Fatal]
